FAERS Safety Report 17392303 (Version 5)
Quarter: 2022Q3

REPORT INFORMATION
  Report Type: Spontaneous
  Country: CA (occurrence: CA)
  Receive Date: 20200207
  Receipt Date: 20220711
  Transmission Date: 20221026
  Serious: Yes (Other)
  Sender: FDA-Public Use
  Company Number: CA-ALLERGAN-2004912US

PATIENT
  Sex: Female

DRUGS (18)
  1. MEMANTINE [Suspect]
     Active Substance: MEMANTINE
     Indication: Migraine
     Dosage: 10 MG, QD
     Dates: start: 20181210
  2. BOTULINUM TOXIN TYPE A [Suspect]
     Active Substance: BOTULINUM TOXIN TYPE A
     Indication: Migraine
     Dosage: UNK, SINGLE
  3. CYPROHEPTADINE [Suspect]
     Active Substance: CYPROHEPTADINE
     Indication: Migraine
     Dosage: 4 MG, QD
     Dates: start: 20180917
  4. CANDESARTAN CILEXETIL [Suspect]
     Active Substance: CANDESARTAN CILEXETIL
     Indication: Migraine
     Dosage: 4 MG, QD
     Route: 048
     Dates: start: 20180322
  5. ALMOTRIPTAN [Suspect]
     Active Substance: ALMOTRIPTAN
     Indication: Migraine
     Dosage: 12.5 MG, QD
     Dates: start: 20180111
  6. RIZATRIPTAN BENZOATE [Suspect]
     Active Substance: RIZATRIPTAN BENZOATE
     Indication: Migraine
     Dosage: 10 MG, QD
     Dates: start: 20180117
  7. GABAPENTIN [Concomitant]
     Active Substance: GABAPENTIN
     Indication: Migraine
  8. AZITHROMYCIN ANHYDROUS [Concomitant]
     Active Substance: AZITHROMYCIN ANHYDROUS
     Indication: Migraine
     Dosage: 250 MG, QD
  9. MOMETASONE [Concomitant]
     Active Substance: MOMETASONE
     Indication: Product used for unknown indication
     Dosage: 50 ?G, QD
     Dates: start: 20180528
  10. PANTOPRAZOLE SODIUM [Concomitant]
     Active Substance: PANTOPRAZOLE SODIUM
     Indication: Migraine
     Dosage: 40 MG, QD
     Dates: start: 20180522
  11. BETAHISTINE HYDROCHLORIDE [Concomitant]
     Active Substance: BETAHISTINE HYDROCHLORIDE
     Indication: Migraine
     Dosage: 8 MG, QD
     Dates: start: 20180404
  12. DANAZOL [Concomitant]
     Active Substance: DANAZOL
     Indication: Migraine
     Dosage: 50 MG, QD
     Dates: start: 20180430
  13. DEPO-MEDROL [Concomitant]
     Active Substance: METHYLPREDNISOLONE ACETATE
     Indication: Migraine
     Dosage: 40 MG/ML, QD
     Dates: start: 20190529
  14. ERYTHROMYCIN ESTOLATE [Concomitant]
     Active Substance: ERYTHROMYCIN ESTOLATE
     Indication: Migraine
     Dosage: 250 MG, QD
  15. LORAZEPAM [Concomitant]
     Active Substance: LORAZEPAM
     Indication: Product used for unknown indication
     Dosage: 1 MG, QD
     Dates: start: 201801
  16. NOVO-FAMOTIDINE [Concomitant]
     Indication: Migraine
     Dosage: 40 MG, QD
     Dates: start: 20181130
  17. ANHYDROUS CITRIC ACID\MAGNESIUM OXIDE\SODIUM PICOSULFATE [Concomitant]
     Active Substance: ANHYDROUS CITRIC ACID\MAGNESIUM OXIDE\SODIUM PICOSULFATE
     Indication: Migraine
     Dosage: UNK
     Dates: start: 20181130
  18. AZITHROMYCIN [Concomitant]
     Active Substance: AZITHROMYCIN
     Dosage: UNK
     Dates: start: 20180519

REACTIONS (8)
  - Anaphylactic reaction [Recovered/Resolved]
  - Drug intolerance [Recovered/Resolved]
  - Periorbital oedema [Recovered/Resolved]
  - Periorbital swelling [Recovered/Resolved]
  - Muscle spasms [Recovered/Resolved]
  - Product use in unapproved indication [Unknown]
  - Drug ineffective for unapproved indication [Unknown]
  - Muscle spasms [Recovered/Resolved]
